FAERS Safety Report 6714173-9 (Version None)
Quarter: 2010Q2

REPORT INFORMATION
  Report Type: 
  Country: None (occurrence: None)
  Receive Date: 20100506
  Receipt Date: 20100426
  Transmission Date: 20101027
  Serious: Yes (Life-Threatening, Hospitalization)
  Sender: FDA-Public Use
  Company Number: FR-BAXTER-2010BH008848

PATIENT
  Age: 56 Year
  Sex: Male
  Weight: 88 kg

DRUGS (10)
  1. ENDOXAN BAXTER [Suspect]
     Indication: MULTIPLE MYELOMA
     Route: 048
     Dates: start: 20091203, end: 20100218
  2. ENDOXAN BAXTER [Suspect]
     Indication: PERIPHERAL BLOOD STEM CELL APHERESIS
     Route: 048
     Dates: start: 20091203, end: 20100218
  3. ENDOXAN BAXTER [Suspect]
     Route: 048
     Dates: start: 20100318
  4. ENDOXAN BAXTER [Suspect]
     Route: 048
     Dates: start: 20100318
  5. THALIDOMIDE [Suspect]
     Indication: MULTIPLE MYELOMA
     Route: 048
     Dates: start: 20091230, end: 20100218
  6. THALIDOMIDE [Suspect]
     Route: 048
     Dates: start: 20100318
  7. DEXAMETHASONE [Suspect]
     Indication: MULTIPLE MYELOMA
     Route: 048
     Dates: start: 20091203, end: 20100218
  8. DEXAMETHASONE [Suspect]
     Route: 048
     Dates: start: 20100318
  9. KAYEXALATE [Concomitant]
     Indication: DRUG USE FOR UNKNOWN INDICATION
     Route: 065
  10. EPOGEN [Concomitant]
     Indication: DRUG USE FOR UNKNOWN INDICATION
     Route: 065

REACTIONS (2)
  - FEBRILE NEUTROPENIA [None]
  - SEPTIC SHOCK [None]
